FAERS Safety Report 23921683 (Version 1)
Quarter: 2024Q2

REPORT INFORMATION
  Report Type: Report from Study
  Country: JP (occurrence: JP)
  Receive Date: 20240530
  Receipt Date: 20240530
  Transmission Date: 20240716
  Serious: Yes (Death, Other)
  Sender: FDA-Public Use
  Company Number: JP-MALLINCKRODT-MNK202403499

PATIENT

DRUGS (3)
  1. NITRIC OXIDE [Suspect]
     Active Substance: NITRIC OXIDE
     Indication: Pulmonary hypertension
     Dosage: 20 PPM
     Route: 055
  2. NITRIC OXIDE [Suspect]
     Active Substance: NITRIC OXIDE
     Dosage: LOWERED TO 5 PPM
     Route: 055
  3. NITRIC OXIDE [Suspect]
     Active Substance: NITRIC OXIDE
     Dosage: UNKNOWN (RESTARTED)
     Route: 055

REACTIONS (2)
  - Multiple organ dysfunction syndrome [Fatal]
  - Pulmonary hypertension [Unknown]
